FAERS Safety Report 5139902-X (Version None)
Quarter: 2006Q4

REPORT INFORMATION
  Report Type: 
  Country: None (occurrence: None)
  Receive Date: 20061031
  Receipt Date: 20060919
  Transmission Date: 20070319
  Serious: Yes (Hospitalization, Other)
  Sender: FDA-Public Use
  Company Number: IN-ELI_LILLY_AND_COMPANY-IN200609004937

PATIENT
  Age: 51 Year
  Sex: Male
  Weight: 42 kg

DRUGS (4)
  1. PEMETREXED [Suspect]
     Indication: NON-SMALL CELL LUNG CANCER
     Dosage: 725 MG, ONCE IN 3 WEEKS
     Route: 042
     Dates: start: 20060213, end: 20060919
  2. FOLIC ACID [Concomitant]
     Indication: PROPHYLAXIS
     Dosage: 1000 MEQ, UNK
     Dates: start: 20060208
  3. VITAMIN B-12 [Concomitant]
     Indication: PROPHYLAXIS
     Dosage: 1000 MEQ, ONCE IN 9 WEEKS
     Dates: start: 20060208
  4. DEXAMETHASONE TAB [Concomitant]
     Indication: PROPHYLAXIS
     Dosage: 4 MG, 2/D FOR 3 DAYS FOR 3 WKS
     Dates: start: 20060212

REACTIONS (7)
  - DYSPHAGIA [None]
  - DYSPHONIA [None]
  - DYSURIA [None]
  - FATIGUE [None]
  - MICTURITION DISORDER [None]
  - PARAPLEGIA [None]
  - SPINAL DISORDER [None]
